FAERS Safety Report 9197615 (Version 1)
Quarter: 2013Q1

REPORT INFORMATION
  Report Type: Spontaneous
  Country: DE (occurrence: DE)
  Receive Date: 20130328
  Receipt Date: 20130328
  Transmission Date: 20140127
  Serious: Yes (Other)
  Sender: FDA-Public Use
  Company Number: DE-GLAXOSMITHKLINE-D0079296A

PATIENT
  Age: 31 Year
  Sex: Female

DRUGS (2)
  1. CEFUHEXAL [Suspect]
     Dosage: 250MG PER DAY
     Route: 048
  2. ALCOHOL [Suspect]
     Route: 048

REACTIONS (2)
  - Loss of consciousness [Unknown]
  - Alcohol interaction [Unknown]
